FAERS Safety Report 5939571-2 (Version None)
Quarter: 2008Q4

REPORT INFORMATION
  Report Type: 
  Country: None (occurrence: None)
  Receive Date: 20081030
  Receipt Date: 20081015
  Transmission Date: 20090506
  Serious: Yes (Death)
  Sender: FDA-Public Use
  Company Number: 08-224

PATIENT
  Age: 58 Year
  Sex: Female

DRUGS (13)
  1. FAZACLO ODT [Suspect]
     Indication: DRUG USE FOR UNKNOWN INDICATION
     Dosage: 150 MG, BID, PO
     Route: 048
     Dates: start: 20080716, end: 20081013
  2. ROCEPHIN IM [Concomitant]
  3. CLINDAMYCIN HCL [Concomitant]
  4. AUGMENTIN '125' [Concomitant]
  5. ZITHROMYCIN [Concomitant]
  6. FLOMAX [Concomitant]
  7. OXCARBAZEPINE [Concomitant]
  8. FLUPHENAZINE PRN [Concomitant]
  9. SIMVASTATIN [Concomitant]
  10. LORATADINE [Concomitant]
  11. ALBUTEROL SULFATE AND IPRATROPIUM BROMIDE [Concomitant]
  12. ACETAMINOPHEN AND HYDROCODONE BITARTRATE [Concomitant]
  13. LORAZEPAM PRN [Concomitant]

REACTIONS (1)
  - INFECTION [None]
